FAERS Safety Report 4611159-5 (Version None)
Quarter: 2005Q1

REPORT INFORMATION
  Report Type: 
  Country: None (occurrence: None)
  Receive Date: 20050317
  Receipt Date: 20050311
  Transmission Date: 20050727
  Serious: Yes (Other)
  Sender: FDA-Public Use
  Company Number: US-AMGEN-US120473

PATIENT
  Sex: Female

DRUGS (5)
  1. NEULASTA [Suspect]
     Indication: CHEMOTHERAPY
     Route: 058
     Dates: start: 20041112, end: 20050203
  2. DOCETAXEL [Suspect]
     Route: 042
     Dates: start: 20041111, end: 20050203
  3. DEXAMETHASONE [Concomitant]
     Dates: start: 20050112, end: 20050114
  4. TETRACYCLINE [Concomitant]
     Dates: start: 19940101
  5. GUAIFENESIN [Concomitant]
     Dates: start: 20041001

REACTIONS (1)
  - PNEUMONITIS [None]
